FAERS Safety Report 5860224-3 (Version None)
Quarter: 2008Q3

REPORT INFORMATION
  Report Type: 
  Country: None (occurrence: None)
  Receive Date: 20080827
  Receipt Date: 20080822
  Transmission Date: 20090109
  Serious: Yes (Other)
  Sender: FDA-Public Use
  Company Number: US-BRISTOL-MYERS SQUIBB COMPANY-14310932

PATIENT
  Age: 74 Year
  Sex: Female
  Weight: 48 kg

DRUGS (3)
  1. ERBITUX [Suspect]
     Indication: PANCREATIC CARCINOMA
     Dosage: 1ST TAKEN:4APR05 C1:D1:400MG/M2(120MIN) C2:D1:250MG/M2(60MIN) C1,2:D8,15,22:250MG/M2(60MIN)
     Route: 042
     Dates: start: 20060731, end: 20060731
  2. RHUMAB-VEGF [Suspect]
     Indication: PANCREATIC CARCINOMA
     Dosage: FIRST TAKEN: 04APR2005 CYC1:DAY 1,15: 10MG/KG (60-90 MIN) CYC2:DAY 1,15: 10MG/KG (30-90 MIN)
     Route: 042
     Dates: start: 20060724, end: 20060724
  3. GEMZAR [Suspect]
     Indication: PANCREATIC CARCINOMA
     Dosage: FIRST TAKEN: 04APR2005 CYC1+ CYC2: DAY1,8,15: 1000MG/M2 (30MIN)
     Route: 042
     Dates: start: 20080731, end: 20080731

REACTIONS (1)
  - PLATELET COUNT DECREASED [None]
